FAERS Safety Report 8308083-3 (Version None)
Quarter: 2012Q1

REPORT INFORMATION
  Report Type: 
  Country: None (occurrence: None)
  Receive Date: 20120327
  Receipt Date: 20091021
  Transmission Date: 20120608
  Serious: Yes (Other)
  Sender: FDA-Public Use
  Company Number: PHEH2009US14261

PATIENT
  Age: 82 Year
  Sex: Male

DRUGS (10)
  1. ACTOS (PIOGLITAZONE, PIOGLITAZONE HYDROCHLORIDE) [Concomitant]
  2. NABUMETONE [Concomitant]
  3. METFORMIN HYDROCHLORIDE [Concomitant]
  4. MECLIZINE [Concomitant]
  5. GLEEVEC [Suspect]
     Indication: CHRONIC MYELOID LEUKAEMIA
     Dosage: 400 MG, QD, ORAL : 600 MG, QD, ORAL
     Route: 048
     Dates: start: 20091001
  6. GLEEVEC [Suspect]
     Indication: CHRONIC MYELOID LEUKAEMIA
     Dosage: 400 MG, QD, ORAL : 600 MG, QD, ORAL
     Route: 048
     Dates: start: 20090915
  7. DOXAZOSIN MESYLATE [Concomitant]
  8. GLIPIZIDE [Concomitant]
  9. DIOVAN [Concomitant]
  10. LIPITOR [Concomitant]

REACTIONS (2)
  - RED BLOOD CELL COUNT DECREASED [None]
  - TRANSFUSION [None]
